FAERS Safety Report 8791459 (Version 2)
Quarter: 2012Q4

REPORT INFORMATION
  Report Type: Spontaneous
  Country: US (occurrence: None)
  Receive Date: 20120911
  Receipt Date: 20121002
  Transmission Date: 20130627
  Serious: Yes (Other)
  Sender: FDA-Public Use
  Company Number: US-1193945

PATIENT
  Age: 72 Year
  Sex: Male

DRUGS (7)
  1. ISOPTO CARPINE [Suspect]
     Indication: GLAUCOMA
     Route: 047
     Dates: start: 20120808, end: 2012
  2. ATENOLOL [Concomitant]
  3. CARDURA [Concomitant]
  4. SIMVASTIN [Concomitant]
  5. COSOPT [Concomitant]
  6. ALPHAGAN [Concomitant]
  7. LUMIGAN [Concomitant]

REACTIONS (2)
  - Visual impairment [None]
  - Visual acuity reduced [None]
